FAERS Safety Report 24787396 (Version 1)
Quarter: 2024Q4

REPORT INFORMATION
  Report Type: Spontaneous
  Country: PR (occurrence: PR)
  Receive Date: 20241230
  Receipt Date: 20241230
  Transmission Date: 20250114
  Serious: Yes (Hospitalization)
  Sender: BRISTOL-MYERS SQUIBB COMPANY
  Company Number: PR-BRISTOL-MYERS SQUIBB COMPANY-2024-196799

PATIENT
  Age: 75 Year
  Sex: Male
  Weight: 74.84 kg

DRUGS (5)
  1. LENALIDOMIDE [Suspect]
     Active Substance: LENALIDOMIDE
     Indication: Myelodysplastic syndrome with excess blasts
     Dosage: FOR 28 DAYS
     Route: 048
     Dates: start: 20231129
  2. FINASTERIDE [Concomitant]
     Active Substance: FINASTERIDE
  3. FUROSEMIDE [Concomitant]
     Active Substance: FUROSEMIDE
  4. GABAPENTIN [Concomitant]
     Active Substance: GABAPENTIN
  5. FLOMAX [Concomitant]
     Active Substance: TAMSULOSIN HYDROCHLORIDE

REACTIONS (2)
  - Hernia pain [Not Recovered/Not Resolved]
  - Post procedural fever [Unknown]

NARRATIVE: CASE EVENT DATE: 20241208
